FAERS Safety Report 7981876-8 (Version None)
Quarter: 2011Q4

REPORT INFORMATION
  Report Type: 
  Country: None (occurrence: None)
  Receive Date: 20111215
  Receipt Date: 20111207
  Transmission Date: 20120403
  Serious: Yes (Other)
  Sender: FDA-Public Use
  Company Number: US-JNJFOC-20111203533

PATIENT
  Sex: Female
  Weight: 65.32 kg

DRUGS (9)
  1. LYRICA [Suspect]
     Indication: PRODUCT USED FOR UNKNOWN INDICATION
     Route: 048
     Dates: start: 20111101
  2. FENTANYL-100 [Suspect]
     Indication: NERVE COMPRESSION
     Dosage: TWO 12.5 UG/HR PATCHES
     Route: 062
     Dates: start: 20111031, end: 20111116
  3. FENTANYL-100 [Suspect]
     Route: 062
     Dates: start: 20110923, end: 20111031
  4. DIOVAN [Concomitant]
     Indication: BLOOD PRESSURE
     Route: 048
  5. FENTANYL-100 [Suspect]
     Indication: ARTHRITIS
     Dosage: TWO 12.5 UG/HR PATCHES
     Route: 062
     Dates: start: 20111031, end: 20111116
  6. STOOL SOFTENER [Concomitant]
     Indication: ABNORMAL FAECES
     Route: 048
  7. FENTANYL-100 [Suspect]
     Route: 062
     Dates: start: 20110923, end: 20111031
  8. METOPROLOL TARTRATE [Concomitant]
     Indication: BLOOD PRESSURE
     Route: 048
  9. LEVOTHYROXINE SODIUM [Concomitant]
     Indication: THYROID DISORDER
     Route: 048

REACTIONS (7)
  - DRUG INEFFECTIVE [None]
  - PRURITUS [None]
  - HOT FLUSH [None]
  - ADVERSE EVENT [None]
  - WEIGHT DECREASED [None]
  - FORMICATION [None]
  - WITHDRAWAL SYNDROME [None]
